FAERS Safety Report 9844841 (Version 5)
Quarter: 2014Q4

REPORT INFORMATION
  Report Type: Spontaneous
  Country: US (occurrence: None)
  Receive Date: 20140122
  Receipt Date: 20141112
  Transmission Date: 20150529
  Serious: Yes (Other)
  Sender: FDA-Public Use
  Company Number: 2014-US-000259

PATIENT
  Age: 30 Year
  Sex: Female
  Weight: 105.6 kg

DRUGS (8)
  1. CELEXA [Concomitant]
     Active Substance: CITALOPRAM HYDROBROMIDE
  2. PHENERGAN (PROMETHAZNE HYDROCHLORIDE) [Concomitant]
  3. NUVIGIL [Concomitant]
     Active Substance: ARMODAFINIL
  4. PROVIGIL [Concomitant]
     Active Substance: MODAFINIL
  5. ADDERALL (AMFETAMINE ASPARTATE, AMFETAMINE SULFATE, DEXAMFETAMINE SACCHARATE, DEXAMFETAMINE SULFATE) [Concomitant]
  6. XYREM [Suspect]
     Active Substance: SODIUM OXYBATE
     Indication: NARCOLEPSY
     Route: 048
     Dates: start: 201306, end: 2013
  7. XYREM [Suspect]
     Active Substance: SODIUM OXYBATE
     Indication: CATAPLEXY
     Route: 048
     Dates: start: 201306, end: 2013
  8. LISINOPRIL (LISINOPRIL) [Concomitant]
     Active Substance: LISINOPRIL

REACTIONS (16)
  - Condition aggravated [None]
  - Incontinence [None]
  - Speech disorder [None]
  - Loss of consciousness [None]
  - Amnesia [None]
  - Seizure [None]
  - Seizure like phenomena [None]
  - Abnormal dreams [None]
  - Confusional state [None]
  - Agitation [None]
  - Headache [None]
  - Fall [None]
  - Road traffic accident [None]
  - Disorientation [None]
  - Intracranial pressure increased [None]
  - Conversion disorder [None]

NARRATIVE: CASE EVENT DATE: 2013
